FAERS Safety Report 8597251-1 (Version None)
Quarter: 2012Q3

REPORT INFORMATION
  Report Type: 
  Country: None (occurrence: None)
  Receive Date: 20120816
  Receipt Date: 20120807
  Transmission Date: 20120928
  Serious: No
  Sender: FDA-Public Use
  Company Number: US-BIOGENIDEC-2012BI030121

PATIENT
  Age: 65 Year
  Sex: Female

DRUGS (3)
  1. INTERFERON BETA-1A [Suspect]
     Route: 030
  2. INTERFERON BETA-1A [Suspect]
     Indication: MULTIPLE SCLEROSIS
     Route: 030
     Dates: start: 19970101
  3. INTERFERON BETA-1A [Suspect]
     Route: 030
     Dates: start: 20100906

REACTIONS (2)
  - INJECTION SITE PAIN [None]
  - DRUG DOSE OMISSION [None]
